FAERS Safety Report 4922559-8 (Version None)
Quarter: 2006Q1

REPORT INFORMATION
  Report Type: 
  Country: None (occurrence: None)
  Receive Date: 20060224
  Receipt Date: 20060221
  Transmission Date: 20060701
  Serious: Yes (Other)
  Sender: FDA-Public Use
  Company Number: US-GLAXOSMITHKLINE-A0594606A

PATIENT
  Age: 36 Year
  Sex: Male

DRUGS (2)
  1. FLONASE [Suspect]
     Dosage: 2SPR PER DAY
     Route: 045
     Dates: start: 20051221, end: 20060213
  2. NO CONCURRENT MEDICATION [Concomitant]

REACTIONS (2)
  - RETINOPATHY [None]
  - VISION BLURRED [None]
